FAERS Safety Report 6224931-5 (Version None)
Quarter: 2009Q2

REPORT INFORMATION
  Report Type: 
  Country: None (occurrence: None)
  Receive Date: 20090612
  Receipt Date: 20090331
  Transmission Date: 20091009
  Serious: No
  Sender: FDA-Public Use
  Company Number: US-ABBOTT-09P-163-0566027-00

PATIENT
  Sex: Female
  Weight: 66.284 kg

DRUGS (16)
  1. HUMIRA [Suspect]
     Indication: CROHN'S DISEASE
     Route: 058
     Dates: start: 20071101, end: 20081101
  2. ALLEGRA [Concomitant]
     Indication: HYPERSENSITIVITY
     Route: 048
  3. ALLEGRA [Concomitant]
     Indication: SINUS DISORDER
  4. SINGULAIR [Concomitant]
     Indication: HYPERSENSITIVITY
     Route: 048
  5. SINGULAIR [Concomitant]
     Indication: SINUS DISORDER
  6. NEXIUM [Concomitant]
     Indication: GASTROOESOPHAGEAL REFLUX DISEASE
     Route: 048
  7. CYMBALTA [Concomitant]
     Indication: ANXIETY
     Route: 048
  8. CYMBALTA [Concomitant]
     Indication: DEPRESSION
  9. CYMBALTA [Concomitant]
     Indication: THORACIC OUTLET SYNDROME
  10. TOPROL-XL [Concomitant]
     Indication: TACHYCARDIA
     Route: 048
  11. ELMIRON [Concomitant]
     Indication: CYSTITIS INTERSTITIAL
     Route: 048
  12. IMURAN [Concomitant]
     Indication: CROHN'S DISEASE
     Route: 048
  13. ASACOL [Concomitant]
     Indication: CROHN'S DISEASE
  14. ENTOCORT EC [Concomitant]
     Indication: CROHN'S DISEASE
     Route: 048
  15. DICYCLOMINE [Concomitant]
     Indication: ABDOMINAL PAIN
     Route: 048
  16. VITAMIN B-12 [Concomitant]
     Indication: MALABSORPTION
     Dosage: TAPERING DOSE

REACTIONS (8)
  - ANTINUCLEAR ANTIBODY POSITIVE [None]
  - ARTHRALGIA [None]
  - JOINT SWELLING [None]
  - LABORATORY TEST ABNORMAL [None]
  - OEDEMA PERIPHERAL [None]
  - PRURITUS [None]
  - RASH MACULAR [None]
  - SWELLING [None]
